FAERS Safety Report 25150256 (Version 1)
Quarter: 2025Q2

REPORT INFORMATION
  Report Type: Spontaneous
  Country: US (occurrence: None)
  Receive Date: 20250401
  Receipt Date: 20250401
  Transmission Date: 20250716
  Serious: No
  Sender: FDA-CTU
  Company Number: None

PATIENT
  Age: 66 Year
  Sex: Male
  Weight: 78.75 kg

DRUGS (1)
  1. MONTELUKAST [Suspect]
     Active Substance: MONTELUKAST
     Indication: Pruritus
     Dosage: OTHER QUANTITY : 1 TABLET(S);?FREQUENCY : DAILY;?
     Route: 048
     Dates: start: 20250129, end: 20250131

REACTIONS (5)
  - Feeling abnormal [None]
  - Brain fog [None]
  - Anxiety [None]
  - Cough [None]
  - Respiratory tract irritation [None]

NARRATIVE: CASE EVENT DATE: 20250131
